FAERS Safety Report 6596848-8 (Version None)
Quarter: 2010Q1

REPORT INFORMATION
  Report Type: 
  Country: None (occurrence: None)
  Receive Date: 20100212
  Receipt Date: 20100126
  Transmission Date: 20100710
  Serious: Yes (Death, Other)
  Sender: FDA-Public Use
  Company Number: CERZ-1000504

PATIENT
  Age: 94 Year
  Sex: Male

DRUGS (1)
  1. CEREZYME [Suspect]
     Indication: GAUCHER'S DISEASE
     Dosage: 40 U/KG, Q2W, INTRAVENOUS
     Route: 042
     Dates: start: 19980101, end: 20090101

REACTIONS (1)
  - METASTATIC NEOPLASM [None]
